FAERS Safety Report 6884055-0 (Version None)
Quarter: 2010Q3

REPORT INFORMATION
  Report Type: 
  Country: None (occurrence: None)
  Receive Date: 20100729
  Receipt Date: 20100716
  Transmission Date: 20110219
  Serious: Yes (Other)
  Sender: FDA-Public Use
  Company Number: PHHY2010US43494

PATIENT
  Sex: Male

DRUGS (10)
  1. ENABLEX [Suspect]
     Indication: MICTURITION URGENCY
     Dosage: 7.5 MG
     Route: 048
     Dates: start: 20100628, end: 20100701
  2. FLOMAX [Concomitant]
     Dosage: 0.4 MG CAPSULE EVEREY DAY HALF
     Route: 048
  3. SOTALOL HCL [Concomitant]
     Dosage: 80 MG, BID
     Route: 048
  4. DIGOXIN [Concomitant]
  5. WARFARIN [Concomitant]
     Dosage: 5 MG EVERY DAY
     Route: 048
  6. HYDROCHLOROTHIAZIDE [Concomitant]
  7. KLOR-CON [Concomitant]
     Dosage: 20 MEQ 1 TABLET EVERY DAY
     Route: 048
  8. MULTIPLE VITAMINS [Concomitant]
     Dosage: 1 TABLET EVERY DAY WITH FOOD
     Route: 048
  9. DIOVAN [Concomitant]
     Dosage: 80 MG TABLET EVERY DAY
     Route: 048
  10. FUROSEMIDE [Concomitant]
     Dosage: 40 MG HALF TABLET EVERY DAY
     Route: 048

REACTIONS (2)
  - BLOOD PRESSURE DECREASED [None]
  - DIZZINESS [None]
